FAERS Safety Report 12787619 (Version 7)
Quarter: 2018Q1

REPORT INFORMATION
  Report Type: Spontaneous
  Country: US (occurrence: US)
  Receive Date: 20160928
  Receipt Date: 20180208
  Transmission Date: 20180508
  Serious: Yes (Hospitalization, Other)
  Sender: FDA-Public Use
  Company Number: US-ROCHE-1726697

PATIENT
  Sex: Female

DRUGS (9)
  1. ESBRIET [Suspect]
     Active Substance: PIRFENIDONE
     Route: 048
     Dates: start: 20170411
  2. PREDNISONE. [Concomitant]
     Active Substance: PREDNISONE
  3. ESBRIET [Suspect]
     Active Substance: PIRFENIDONE
     Route: 048
  4. ESBRIET [Suspect]
     Active Substance: PIRFENIDONE
     Route: 048
     Dates: start: 201612
  5. ASPIRIN. [Concomitant]
     Active Substance: ASPIRIN
  6. PEPCID AC [Concomitant]
     Active Substance: FAMOTIDINE
  7. BABY ASPIRIN [Concomitant]
     Active Substance: ASPIRIN
  8. ESBRIET [Suspect]
     Active Substance: PIRFENIDONE
     Indication: IDIOPATHIC PULMONARY FIBROSIS
     Route: 048
     Dates: start: 20160212, end: 20160309
  9. CEFADROXIL. [Concomitant]
     Active Substance: CEFADROXIL

REACTIONS (16)
  - Nausea [Unknown]
  - Malaise [Unknown]
  - Asthenia [Unknown]
  - Pruritus [Unknown]
  - Dizziness [Unknown]
  - Anaemia [Unknown]
  - Abdominal pain upper [Unknown]
  - Gastrointestinal neoplasm [Unknown]
  - Small intestine carcinoma [Unknown]
  - Fibrosis [Unknown]
  - Infected bite [Unknown]
  - Abdominal discomfort [Unknown]
  - Headache [Unknown]
  - Weight decreased [Unknown]
  - Fatigue [Unknown]
  - Decreased appetite [Unknown]
